FAERS Safety Report 13457112 (Version 1)
Quarter: 2017Q2

REPORT INFORMATION
  Report Type: Spontaneous
  Country: US (occurrence: US)
  Receive Date: 20170419
  Receipt Date: 20170419
  Transmission Date: 20170830
  Serious: Yes (Death, Life-Threatening, Other)
  Sender: FDA-Public Use
  Company Number: US-SA-POMP-1002309

PATIENT
  Age: 49 Year
  Sex: Male
  Weight: 76.2 kg

DRUGS (12)
  1. ADVIL [Concomitant]
     Active Substance: IBUPROFEN
     Indication: PAIN
     Route: 048
  2. ZOLOFT [Concomitant]
     Active Substance: SERTRALINE HYDROCHLORIDE
     Indication: ANXIETY
     Route: 048
  3. PROVENTIL [Concomitant]
     Active Substance: ALBUTEROL
     Dates: start: 20100429
  4. PANTHENOL/RETINOL/THIAMINE HYDROCHLORIDE/ASCORBIC ACID/ERGOCALCIFEROL/FOLIC ACID/RIBOFLAVIN/NICOTINA [Concomitant]
     Route: 048
  5. PROVENTIL [Concomitant]
     Active Substance: ALBUTEROL
     Dosage: 0.083% NEBULIZER SOLUTION
     Dates: start: 20100610
  6. LUMIZYME [Suspect]
     Active Substance: ALGLUCOSIDASE ALFA
     Indication: GLYCOGEN STORAGE DISEASE TYPE II
     Dosage: 20 MG/KG, Q2W
     Route: 042
     Dates: start: 20080417, end: 20120704
  7. SUDAFED [Concomitant]
     Active Substance: PSEUDOEPHEDRINE HYDROCHLORIDE
     Indication: NASAL CONGESTION
     Route: 048
  8. SIMETHICONE (DIMETHICONE) [Concomitant]
     Active Substance: DIMETHICONE
     Indication: FLATULENCE
     Dosage: AFTER MEALS AS NEEDED
     Route: 048
  9. SODIUM CHLORIDE. [Concomitant]
     Active Substance: SODIUM CHLORIDE
     Dates: start: 20100610
  10. PROVENTIL [Concomitant]
     Active Substance: ALBUTEROL
     Dates: start: 20100121
  11. LOPERAMIDE HYDROCHLORIDE. [Concomitant]
     Active Substance: LOPERAMIDE HYDROCHLORIDE
     Indication: DIARRHOEA
     Route: 048
  12. ACETAMINOPHEN. [Concomitant]
     Active Substance: ACETAMINOPHEN
     Dates: start: 20100909

REACTIONS (16)
  - Brain oedema [Fatal]
  - Dyspnoea [Fatal]
  - Emphysema [Fatal]
  - Hepatic steatosis [Fatal]
  - Benign prostatic hyperplasia [Fatal]
  - Fall [Fatal]
  - Muscular weakness [Fatal]
  - Fatigue [Fatal]
  - Bronchiolitis [Unknown]
  - Balance disorder [Fatal]
  - Chronic respiratory failure [Fatal]
  - Splenomegaly [Fatal]
  - Coronary artery stenosis [Fatal]
  - Disease progression [Fatal]
  - Diaphragm muscle weakness [Fatal]
  - Muscular dystrophy [Fatal]

NARRATIVE: CASE EVENT DATE: 20120709
